FAERS Safety Report 23179454 (Version 1)
Quarter: 2023Q4

REPORT INFORMATION
  Report Type: Spontaneous
  Country: US (occurrence: US)
  Receive Date: 20231113
  Receipt Date: 20231113
  Transmission Date: 20240109
  Serious: No
  Sender: FDA-Public Use
  Company Number: US-AMGEN-USASP2023202503

PATIENT
  Age: 78 Year
  Sex: Female

DRUGS (2)
  1. REPATHA [Suspect]
     Active Substance: EVOLOCUMAB
     Indication: Blood cholesterol increased
     Dosage: 140 MILLIGRAM, Q2WK
     Route: 065
     Dates: start: 20230328
  2. MYRBETRIQ [Concomitant]
     Active Substance: MIRABEGRON
     Indication: Hypertonic bladder

REACTIONS (3)
  - High density lipoprotein decreased [Unknown]
  - Drug dose omission by device [Unknown]
  - Device difficult to use [Unknown]

NARRATIVE: CASE EVENT DATE: 20230101
